FAERS Safety Report 9397980 (Version 1)
Quarter: 2013Q3

REPORT INFORMATION
  Report Type: Spontaneous
  Country: JP (occurrence: JP)
  Receive Date: 20130712
  Receipt Date: 20130712
  Transmission Date: 20140515
  Serious: Yes (Hospitalization)
  Sender: FDA-Public Use
  Company Number: PHHY2013JP072188

PATIENT
  Age: 40 Year
  Sex: Female

DRUGS (2)
  1. OXALIPLATIN [Suspect]
     Dosage: 130 MG/M2 PER DAY ON DAY 1
  2. CAPECITABINE [Concomitant]
     Dosage: 1000 MG/M2 PER DAY (DAY 1-14)
     Route: 048

REACTIONS (6)
  - Splenomegaly [Recovered/Resolved]
  - Hepatic cancer metastatic [Recovered/Resolved]
  - Hepatic mass [Recovered/Resolved]
  - Hepatic lesion [Recovered/Resolved]
  - Venoocclusive liver disease [Recovered/Resolved]
  - Peliosis hepatis [Recovered/Resolved]
